FAERS Safety Report 8793479 (Version 2)
Quarter: 2012Q4

REPORT INFORMATION
  Report Type: Report from Study
  Country: JP (occurrence: JP)
  Receive Date: 20120918
  Receipt Date: 20121002
  Transmission Date: 20130627
  Serious: Yes (Hospitalization)
  Sender: FDA-Public Use
  Company Number: JP-SHIRE-CQT4-2012-00003

PATIENT
  Age: 78 Year
  Sex: Male
  Weight: 76.8 kg

DRUGS (68)
  1. ANAGRELIDE [Suspect]
     Indication: ESSENTIAL THROMBOCYTHAEMIA
     Dosage: 0.75 mg, daily
     Route: 048
     Dates: start: 20120317, end: 20120827
  2. ANAGRELIDE [Suspect]
     Dosage: 1 mg, daily
     Route: 048
     Dates: start: 20111115, end: 20111122
  3. ANAGRELIDE [Suspect]
     Dosage: 0.5 mg, daily
     Route: 048
     Dates: start: 20111123, end: 20111213
  4. ANAGRELIDE [Suspect]
     Dosage: 1 mg, daily
     Route: 048
     Dates: start: 20111214, end: 20120316
  5. ANAGRELIDE [Suspect]
     Dosage: 0.5 mg, UNK
     Dates: start: 20120828, end: 20120830
  6. SOFTEAR [Concomitant]
     Indication: CATARACT
     Dosage: UNK
     Dates: start: 2005, end: 20120824
  7. KARY UNI                           /00528801/ [Concomitant]
     Indication: CATARACT
     Dosage: UNK
     Dates: start: 2005, end: 20120824
  8. BAYASPIRIN [Concomitant]
     Indication: ESSENTIAL THROMBOCYTHAEMIA
     Dosage: UNK
     Dates: start: 20080815, end: 20120110
  9. SELBEX [Concomitant]
     Indication: PROPHYLAXIS
     Dosage: UNK
     Dates: start: 20080815, end: 20120110
  10. NEUROVITAN                         /00280501/ [Concomitant]
     Indication: MALAISE
     Dosage: UNK
     Dates: start: 20110428, end: 20120824
  11. UNISIA [Concomitant]
     Indication: HYPERTENSION
     Dosage: UNK
     Dates: start: 20110520, end: 20120828
  12. GASTER [Concomitant]
     Dosage: UNK
     Dates: start: 20110930, end: 20120412
  13. GASTER [Concomitant]
     Dosage: UNK
     Dates: start: 20120413, end: 20120422
  14. KERATINAMIN KOWA                   /00481901/ [Concomitant]
     Indication: PRURITUS
     Dosage: UNK
     Dates: start: 20120525, end: 20120824
  15. KERATINAMIN KOWA                   /00481901/ [Concomitant]
     Dosage: UNK
     Dates: start: 20111118, end: 20120316
  16. MEIACT [Concomitant]
     Indication: EPISTAXIS
     Dosage: UNK
     Dates: start: 20120325, end: 20120329
  17. ALLEGRA [Concomitant]
     Indication: EPISTAXIS
     Dosage: UNK
     Dates: start: 20120325, end: 20120329
  18. ADONA                              /00056903/ [Concomitant]
     Indication: EPISTAXIS
     Dosage: UNK
     Dates: start: 20120407, end: 20120409
  19. TRANSAMIN [Concomitant]
     Indication: EPISTAXIS
     Dosage: UNK
  20. XYLESTESIN                         /00033401/ [Concomitant]
     Indication: TOOTH FRACTURE
     Dosage: UNK
     Dates: start: 20120216, end: 20120216
  21. KEFRAL [Concomitant]
     Indication: LYMPHADENITIS
     Dosage: UNK
     Dates: start: 20120413, end: 20120422
  22. LOXONIN [Concomitant]
     Indication: LYMPHADENITIS
     Dosage: UNK
     Dates: start: 20120413, end: 20120422
  23. MAGLAX [Concomitant]
     Indication: CONSTIPATION PROPHYLAXIS
     Dosage: UNK
     Dates: start: 20120502, end: 20120512
  24. MAGLAX [Concomitant]
     Dosage: UNK
     Dates: start: 20120921
  25. CRAVIT [Concomitant]
     Indication: BRONCHITIS
     Dosage: UNK
     Dates: start: 20120710, end: 20120716
  26. CODEINE PHOSPHATE [Concomitant]
     Indication: BRONCHITIS
     Dosage: UNK
     Dates: start: 20120710, end: 20120716
  27. LAXOBERON [Concomitant]
     Indication: CONSTIPATION PROPHYLAXIS
     Dosage: UNK
     Dates: start: 20120710, end: 20120716
  28. LAXOBERON [Concomitant]
     Indication: PREMEDICATION
     Dosage: UNK
     Dates: start: 20120722, end: 20120722
  29. NIFLEC [Concomitant]
     Indication: PREMEDICATION
     Dosage: UNK
     Dates: start: 20120723, end: 20120723
  30. BUSCOPAN [Concomitant]
     Indication: PREMEDICATION
     Dosage: UNK
     Dates: start: 20120723, end: 20120723
  31. MEDICON                            /00048102/ [Concomitant]
     Indication: BRONCHITIS
     Dosage: UNK
     Dates: start: 20120724, end: 20120910
  32. XYLOCAINE JELLY [Concomitant]
     Indication: INVESTIGATION
     Dosage: UNK
     Dates: start: 20120723, end: 20120723
  33. CLARITH [Concomitant]
     Indication: BRONCHITIS
     Dosage: UNK
     Dates: start: 20120814, end: 20120821
  34. CALONAL [Concomitant]
     Indication: BRONCHITIS
     Dosage: UNK
     Dates: start: 20120824, end: 20120829
  35. LACTEC                             /00490001/ [Concomitant]
     Indication: DEHYDRATION
     Dosage: UNK
     Dates: start: 20120824, end: 20120825
  36. BFLUID [Concomitant]
     Dosage: UNK
     Dates: start: 20120826, end: 20120829
  37. BFLUID [Concomitant]
     Dosage: UNK
     Dates: start: 20120831
  38. LACTEC                             /00490001/ [Concomitant]
     Indication: INFUSION
     Dosage: UNK
     Dates: start: 20120905, end: 20120906
  39. LASIX                              /00032601/ [Concomitant]
     Indication: CARDIAC FAILURE
     Dosage: UNK
     Dates: start: 20120905, end: 20120906
  40. LASIX                              /00032601/ [Concomitant]
     Dosage: UNK
     Dates: start: 20120908, end: 20120918
  41. NEW LECICARBON [Concomitant]
     Indication: CONSTIPATION
     Dosage: UNK
     Dates: start: 20120905
  42. MAGCOROL                           /00434501/ [Concomitant]
     Indication: PREMEDICATION
     Dosage: UNK
     Dates: start: 20120905, end: 20120905
  43. PURSENNID /00142207/ [Concomitant]
     Indication: PREMEDICATION
     Dosage: UNK
     Dates: start: 20120905, end: 20120905
  44. NEW LECICARBON [Concomitant]
     Dosage: UNK
     Dates: start: 20120906, end: 20120906
  45. SODIUM CHLORIDE [Concomitant]
     Indication: CARDIAC FAILURE
     Dosage: UNK
     Dates: start: 20120906, end: 20120912
  46. LACTEC                             /00490001/ [Concomitant]
     Indication: CARDIAC FAILURE
     Dosage: UNK
     Dates: start: 20120906, end: 20120906
  47. SODIUM CHLORIDE [Concomitant]
     Indication: CARDIAC FAILURE
     Dosage: UNK
     Dates: start: 20120911
  48. LENDORMIN [Concomitant]
     Indication: PROPHYLAXIS
     Dosage: UNK
     Dates: start: 20120911
  49. HEPARIN NA LOCK [Concomitant]
     Indication: INFUSION
     Dosage: UNK
     Dates: start: 20120826, end: 20120829
  50. HEPARIN NA LOCK [Concomitant]
     Dosage: UNK
     Dates: start: 20120831, end: 20120908
  51. HEPARIN NA LOCK [Concomitant]
     Dosage: UNK
     Dates: start: 20120910, end: 20120913
  52. HEPARIN NA LOCK [Concomitant]
     Dosage: UNK
     Dates: start: 20120915
  53. PURSENNID /00142207/ [Concomitant]
     Indication: CONSTIPATION PROPHYLAXIS
     Dosage: UNK
     Dates: start: 20120829
  54. LAXOBERON [Concomitant]
     Indication: ABDOMINAL DISTENSION
     Dosage: UNK
     Dates: start: 20120907
  55. FUNGUARD [Concomitant]
     Indication: PROPHYLAXIS
     Dosage: UNK
     Dates: start: 20120912
  56. BAKTAR [Concomitant]
     Indication: PROPHYLAXIS
     Dosage: UNK
     Dates: start: 20120912
  57. ALOX [Concomitant]
     Indication: PROPHYLAXIS
     Dosage: UNK
     Dates: start: 20120912, end: 20120912
  58. PREDONINE                          /00016201/ [Concomitant]
     Indication: LYMPHOMA
     Dosage: UNK
     Dates: start: 20120912, end: 20120916
  59. ENDOXAN /00021101/ [Concomitant]
     Indication: LYMPHOMA
     Dosage: UNK
     Dates: start: 20120912, end: 20120912
  60. DOXORUBICIN HYDROCHLORIDE NK [Concomitant]
     Indication: LYMPHOMA
     Dosage: UNK
     Dates: start: 20120912, end: 20120912
  61. ONCOVIN INJ.LSG. [Concomitant]
     Indication: LYMPHOMA
     Dosage: UNK
     Dates: start: 20120912, end: 20120912
  62. GRAN [Concomitant]
     Indication: PROPHYLAXIS
     Dosage: UNK
     Dates: start: 20120918
  63. TAKEPRON [Concomitant]
     Indication: OCCULT BLOOD
     Dosage: UNK
     Dates: start: 20120918
  64. IRRADIATED PLATELET CONCENTRATE, LEUKOCYTES R [Concomitant]
     Indication: TRANSFUSION
     Dosage: UNK
     Dates: start: 20120918, end: 20120918
  65. IRRADIATED PLATELET CONCENTRATE, LEUKOCYTES R [Concomitant]
     Dosage: UNK
     Dates: start: 20120921, end: 20120921
  66. ISOTONIC SODIUM CHLORIDE SOLUTION [Concomitant]
     Indication: CARDIAC FAILURE
     Dosage: UNK
     Dates: start: 20120920, end: 20120920
  67. RED CELLS MAP [Concomitant]
     Indication: TRANSFUSION
     Dosage: UNK
     Dates: start: 20120921, end: 20120921
  68. RED CELLS MAP [Concomitant]
     Dosage: UNK
     Dates: start: 20120923, end: 20120923

REACTIONS (2)
  - Angioimmunoblastic T-cell lymphoma [Not Recovered/Not Resolved]
  - Pancytopenia [Not Recovered/Not Resolved]
